FAERS Safety Report 4560206-8 (Version None)
Quarter: 2005Q1

REPORT INFORMATION
  Report Type: 
  Country: None (occurrence: None)
  Receive Date: 20050120
  Receipt Date: 20050120
  Transmission Date: 20050727
  Serious: Yes (Life-Threatening, Hospitalization)
  Sender: FDA-Public Use
  Company Number: None

PATIENT
  Age: 49 Year
  Sex: Female
  Weight: 89.3586 kg

DRUGS (1)
  1. THE ORIGINAL DIET PATCH [Suspect]
     Dosage: 1 EVERY 3 DAYS

REACTIONS (5)
  - CEREBROVASCULAR ACCIDENT [None]
  - GRAND MAL CONVULSION [None]
  - SOMNOLENCE [None]
  - THERAPY RESPONDER [None]
  - UNRESPONSIVE TO VERBAL STIMULI [None]
